FAERS Safety Report 9822665 (Version 1)
Quarter: 2014Q1

REPORT INFORMATION
  Report Type: Spontaneous
  Country: KR (occurrence: KR)
  Receive Date: 20140116
  Receipt Date: 20140116
  Transmission Date: 20141002
  Serious: Yes (Other)
  Sender: FDA-Public Use
  Company Number: KR-ROCHE-1331719

PATIENT
  Age: 40 Year
  Sex: Male

DRUGS (1)
  1. BEVACIZUMAB [Suspect]
     Indication: RETINAL VEIN OCCLUSION
     Route: 050

REACTIONS (4)
  - Iridocyclitis [Recovered/Resolved]
  - Visual acuity reduced [Recovered/Resolved]
  - Retinal exudates [Recovered/Resolved]
  - Off label use [Unknown]
